FAERS Safety Report 8779074 (Version 3)
Quarter: 2012Q4

REPORT INFORMATION
  Report Type: 
  Country: US (occurrence: US)
  Receive Date: 20120912
  Receipt Date: 20121019
  Transmission Date: 20130627
  Serious: Yes (Other)
  Sender: FDA-Public Use
  Company Number: US-BRISTOL-MYERS SQUIBB COMPANY-16927923

PATIENT
  Age: 49 Year
  Sex: Female

DRUGS (2)
  1. TAXOL [Suspect]
     Dosage: No of dose:1
     Route: 042
     Dates: start: 2012, end: 2012
  2. HERCEPTIN [Suspect]

REACTIONS (2)
  - Brain injury [Unknown]
  - Alopecia [Unknown]
